FAERS Safety Report 6821078-1 (Version None)
Quarter: 2010Q3

REPORT INFORMATION
  Report Type: 
  Country: None (occurrence: None)
  Receive Date: 20100707
  Receipt Date: 20080112
  Transmission Date: 20110219
  Serious: No
  Sender: FDA-Public Use
  Company Number: US-PFIZER INC-2007084085

PATIENT
  Age: 46 Year
  Sex: Female

DRUGS (1)
  1. ZOLOFT [Suspect]

REACTIONS (8)
  - ABDOMINAL DISCOMFORT [None]
  - DYSURIA [None]
  - HYPERSENSITIVITY [None]
  - NERVOUSNESS [None]
  - PRURITUS [None]
  - SKIN LACERATION [None]
  - VOMITING [None]
  - VULVAL LACERATION [None]
